FAERS Safety Report 9929927 (Version 2)
Quarter: 2014Q2

REPORT INFORMATION
  Report Type: Spontaneous
  Country: US (occurrence: US)
  Receive Date: 20140227
  Receipt Date: 20140403
  Transmission Date: 20141212
  Serious: Yes (Other)
  Sender: FDA-Public Use
  Company Number: US-RB-063779-14

PATIENT
  Sex: Male
  Weight: 1.21 kg

DRUGS (4)
  1. SUBOXONE FILM [Suspect]
     Dosage: SUBOXONE FILM; MOTHER TAKING 2.75 FILMS DAILY
     Route: 064
     Dates: start: 201307, end: 201401
  2. SUBOXONE FILM [Suspect]
     Indication: DRUG DEPENDENCE
     Dosage: SUBOXONE FILM; MOTHER TAKING 2.75 FILMS DAILY
     Route: 063
     Dates: start: 2014, end: 2014
  3. NICOTINE [Suspect]
     Indication: PRODUCT USED FOR UNKNOWN INDICATION
     Dosage: APPROXIMATELY 1/2 PACK PER DAYS
     Route: 064
     Dates: start: 201307, end: 201401
  4. NICOTINE [Suspect]
     Dosage: UNKNOWN DOSING DETAILS
     Route: 063
     Dates: start: 201401, end: 2014

REACTIONS (4)
  - Foetal exposure during pregnancy [Recovered/Resolved]
  - Premature baby [Recovered/Resolved]
  - Low birth weight baby [Recovered/Resolved]
  - Exposure during breast feeding [Recovered/Resolved]
